FAERS Safety Report 18032129 (Version 2)
Quarter: 2020Q3

REPORT INFORMATION
  Report Type: Spontaneous
  Country: US (occurrence: US)
  Receive Date: 20200716
  Receipt Date: 20200723
  Transmission Date: 20201103
  Serious: Yes (Other)
  Sender: FDA-Public Use
  Company Number: US-HIKMA PHARMACEUTICALS USA INC.-US-H14001-20-03258

PATIENT
  Sex: Male

DRUGS (2)
  1. DESVENLAFAXINE. [Suspect]
     Active Substance: DESVENLAFAXINE
     Indication: OBSESSIVE-COMPULSIVE DISORDER
     Route: 048
     Dates: start: 201811, end: 2019
  2. DESVENLAFAXINE. [Suspect]
     Active Substance: DESVENLAFAXINE
     Route: 048
     Dates: start: 201811, end: 2019

REACTIONS (17)
  - Insomnia [Unknown]
  - Feeling abnormal [Unknown]
  - Vertigo [Unknown]
  - Somnolence [Unknown]
  - Tinnitus [Unknown]
  - Suicidal ideation [Unknown]
  - Withdrawal syndrome [Recovered/Resolved with Sequelae]
  - Depressed mood [Unknown]
  - Homicidal ideation [Unknown]
  - Photophobia [Unknown]
  - Product dose omission issue [Unknown]
  - Palpitations [Unknown]
  - Panic attack [Unknown]
  - Physical disability [Unknown]
  - Paranoia [Unknown]
  - Tremor [Unknown]
  - Paraesthesia [Unknown]

NARRATIVE: CASE EVENT DATE: 2019
